FAERS Safety Report 5567546-4 (Version None)
Quarter: 2007Q4

REPORT INFORMATION
  Report Type: 
  Country: None (occurrence: None)
  Receive Date: 20071214
  Receipt Date: 20071127
  Transmission Date: 20080405
  Serious: No
  Sender: FDA-Public Use
  Company Number: 20074317

PATIENT
  Age: 43 Year
  Sex: Female

DRUGS (4)
  1. LIORESAL [Suspect]
     Indication: MUSCLE SPASTICITY
     Dosage: MCG, DAILY; INTRATHECAL
     Route: 037
  2. DIAZEPAM [Concomitant]
  3. NEURONTIN [Concomitant]
  4. DYSPORT [Concomitant]

REACTIONS (1)
  - STRABISMUS [None]
